FAERS Safety Report 5808497-7 (Version None)
Quarter: 2008Q3

REPORT INFORMATION
  Report Type: 
  Country: None (occurrence: None)
  Receive Date: 20080714
  Receipt Date: 20080703
  Transmission Date: 20090109
  Serious: Yes (Hospitalization)
  Sender: FDA-Public Use
  Company Number: US-AMGEN-US291372

PATIENT
  Sex: Male

DRUGS (5)
  1. ENBREL [Suspect]
     Indication: RHEUMATOID ARTHRITIS
     Dates: start: 20030301, end: 20060515
  2. REMICADE [Suspect]
     Route: 042
     Dates: start: 20061116
  3. ACIPHEX [Concomitant]
     Dates: start: 20071101
  4. IBUPROFEN [Concomitant]
     Dates: start: 20020101
  5. VICODIN [Concomitant]
     Dates: start: 20020101

REACTIONS (1)
  - PLEURISY [None]
